FAERS Safety Report 8491932-6 (Version None)
Quarter: 2012Q3

REPORT INFORMATION
  Report Type: 
  Country: None (occurrence: None)
  Receive Date: 20120706
  Receipt Date: 20120406
  Transmission Date: 20120928
  Serious: No
  Sender: FDA-Public Use
  Company Number: US-GLAXOSMITHKLINE-A0972673A

PATIENT
  Age: 67 Year
  Sex: Female

DRUGS (8)
  1. COMBIVENT [Concomitant]
  2. NASONEX [Concomitant]
  3. FLOVENT [Suspect]
     Indication: ASTHMA
     Dosage: 2PUFF TWICE PER DAY
     Route: 055
     Dates: start: 19970101, end: 20120405
  4. SEREVENT [Suspect]
     Indication: ASTHMA
     Dosage: 1PUFF PER DAY
     Route: 055
     Dates: start: 19970101, end: 20120405
  5. SINGULAIR [Concomitant]
  6. ESOMEPRAZOLE [Concomitant]
  7. BENADRYL [Concomitant]
  8. MELATONIN [Concomitant]

REACTIONS (2)
  - TREMOR [None]
  - INSOMNIA [None]
